FAERS Safety Report 25177905 (Version 2)
Quarter: 2025Q3

REPORT INFORMATION
  Report Type: Spontaneous
  Country: CH (occurrence: CH)
  Receive Date: 20250409
  Receipt Date: 20250802
  Transmission Date: 20251020
  Serious: Yes (Hospitalization, Other)
  Sender: ALEXION PHARMACEUTICALS
  Company Number: None

PATIENT
  Age: 43 Year
  Sex: Female
  Weight: 72.1 kg

DRUGS (18)
  1. IMFINZI [Suspect]
     Active Substance: DURVALUMAB
     Indication: Small cell lung cancer
  2. PANTOPRAZOLE SODIUM [Concomitant]
     Active Substance: PANTOPRAZOLE SODIUM
  3. Paspertin [Concomitant]
  4. Paspertin [Concomitant]
  5. BROMAZEPAM [Concomitant]
     Active Substance: BROMAZEPAM
  6. MEROPENEM [Concomitant]
     Active Substance: MEROPENEM
     Indication: Infection
  7. DEXAMETHASONE [Concomitant]
     Active Substance: DEXAMETHASONE
  8. THIAMINE HYDROCHLORIDE [Concomitant]
     Active Substance: THIAMINE HYDROCHLORIDE
  9. ACETAMINOPHEN [Concomitant]
     Active Substance: ACETAMINOPHEN
  10. NEXIUM [Concomitant]
     Active Substance: ESOMEPRAZOLE MAGNESIUM
  11. ASCORBIC ACID\MINERALS\VITAMINS [Concomitant]
     Active Substance: ASCORBIC ACID\MINERALS\VITAMINS
  12. FRAGMIN [Concomitant]
     Active Substance: DALTEPARIN SODIUM
  13. ZOLPIDEM [Concomitant]
     Active Substance: ZOLPIDEM TARTRATE
     Route: 065
  14. LIDOCAINE [Concomitant]
     Active Substance: LIDOCAINE
  15. CETYLPYRIDINIUM CHLORIDE\LEVOMENTHOL\LIDOCAINE HYDROCHLORIDE [Concomitant]
     Active Substance: CETYLPYRIDINIUM CHLORIDE\LEVOMENTHOL\LIDOCAINE HYDROCHLORIDE
  16. MORPHINE [Concomitant]
     Active Substance: MORPHINE
     Dates: start: 20250225, end: 20250225
  17. MORPHINE [Concomitant]
     Active Substance: MORPHINE
     Dates: start: 20250225, end: 20250225
  18. OXYCODONE [Concomitant]
     Active Substance: OXYCODONE
     Route: 065
     Dates: start: 20250225, end: 20250225

REACTIONS (4)
  - Impaired gastric emptying [Unknown]
  - Mydriasis [Unknown]
  - Hypoaesthesia [Unknown]
  - Urinary hesitation [Recovering/Resolving]

NARRATIVE: CASE EVENT DATE: 20250216
